FAERS Safety Report 4619876-8 (Version None)
Quarter: 2005Q1

REPORT INFORMATION
  Report Type: 
  Country: None (occurrence: None)
  Receive Date: 20050328
  Receipt Date: 20050315
  Transmission Date: 20050727
  Serious: Yes (Hospitalization)
  Sender: FDA-Public Use
  Company Number: JP-JNJFOC-20050204777

PATIENT
  Sex: Female

DRUGS (3)
  1. REMICADE [Suspect]
     Dosage: NINTH INFUSION
     Route: 042
     Dates: start: 20031211
  2. REMICADE [Suspect]
     Indication: RHEUMATOID ARTHRITIS
     Route: 042
     Dates: start: 20031211
  3. METHOTREXATE [Concomitant]

REACTIONS (2)
  - PNEUMONIA [None]
  - TUBERCULOSIS [None]
